FAERS Safety Report 18591876 (Version 8)
Quarter: 2021Q3

REPORT INFORMATION
  Report Type: Report from Study
  Country: None (occurrence: US)
  Receive Date: 20201208
  Receipt Date: 20210715
  Transmission Date: 20211014
  Serious: Yes (Hospitalization)
  Sender: FDA-Public Use
  Company Number: US-ABBVIE-20K-163-3681345-00

PATIENT
  Age: 66 Year
  Sex: Male
  Weight: 108 kg

DRUGS (4)
  1. IMBRUVICA [Suspect]
     Active Substance: IBRUTINIB
     Route: 048
  2. IMBRUVICA [Suspect]
     Active Substance: IBRUTINIB
     Route: 048
     Dates: start: 20200804
  3. IMBRUVICA [Suspect]
     Active Substance: IBRUTINIB
     Indication: CHRONIC LYMPHOCYTIC LEUKAEMIA
     Route: 048
     Dates: start: 20200805
  4. IMBRUVICA [Suspect]
     Active Substance: IBRUTINIB
     Route: 048

REACTIONS (22)
  - Hyperlipidaemia [Unknown]
  - Gout [Unknown]
  - Arthropod sting [Not Recovered/Not Resolved]
  - Increased viscosity of upper respiratory secretion [Not Recovered/Not Resolved]
  - Erythema [Unknown]
  - Anxiety [Unknown]
  - Memory impairment [Not Recovered/Not Resolved]
  - Muscle spasms [Recovering/Resolving]
  - Oropharyngeal pain [Not Recovered/Not Resolved]
  - Increased tendency to bruise [Recovered/Resolved]
  - Asthma [Unknown]
  - Peripheral swelling [Not Recovered/Not Resolved]
  - Myalgia [Not Recovered/Not Resolved]
  - Hypertension [Not Recovered/Not Resolved]
  - Contusion [Not Recovered/Not Resolved]
  - Acne pustular [Recovered/Resolved]
  - Thyroid atrophy [Unknown]
  - Osteoarthritis [Unknown]
  - Rash erythematous [Unknown]
  - Fatigue [Recovering/Resolving]
  - Hypothyroidism [Unknown]
  - Thrombocytopenia [Unknown]

NARRATIVE: CASE EVENT DATE: 2020
